FAERS Safety Report 4999757-0 (Version None)
Quarter: 2006Q2

REPORT INFORMATION
  Report Type: 
  Country: None (occurrence: None)
  Receive Date: 20060511
  Receipt Date: 20060503
  Transmission Date: 20061013
  Serious: Yes (Hospitalization)
  Sender: FDA-Public Use
  Company Number: FR-GLAXOSMITHKLINE-B0422997A

PATIENT
  Age: 66 Year
  Sex: Male
  Weight: 74 kg

DRUGS (7)
  1. NARAMIG [Suspect]
     Indication: MIGRAINE
     Route: 048
     Dates: end: 20060211
  2. ZOMIG [Suspect]
     Indication: MIGRAINE
     Route: 048
     Dates: end: 20060211
  3. ISOPTIN [Concomitant]
     Route: 065
  4. ASPIRIN [Concomitant]
     Route: 065
  5. XATRAL [Concomitant]
     Route: 065
  6. ZOFENOPRIL [Concomitant]
     Route: 065
  7. VOLTAREN [Concomitant]
     Route: 065

REACTIONS (14)
  - ABDOMINAL PAIN [None]
  - BLOOD ALKALINE PHOSPHATASE INCREASED [None]
  - BLOOD BILIRUBIN INCREASED [None]
  - BRADYCARDIA [None]
  - COLITIS ISCHAEMIC [None]
  - COLITIS ULCERATIVE [None]
  - GAMMA-GLUTAMYLTRANSFERASE INCREASED [None]
  - GENERAL PHYSICAL HEALTH DETERIORATION [None]
  - HEPATITIS CHOLESTATIC [None]
  - HEPATOMEGALY [None]
  - HYPOVOLAEMIA [None]
  - RECTAL HAEMORRHAGE [None]
  - RENAL FAILURE ACUTE [None]
  - WEIGHT DECREASED [None]
